FAERS Safety Report 19003727 (Version 1)
Quarter: 2021Q1

REPORT INFORMATION
  Report Type: Spontaneous
  Country: US (occurrence: US)
  Receive Date: 20210312
  Receipt Date: 20210312
  Transmission Date: 20210420
  Serious: No
  Sender: FDA-Public Use
  Company Number: US-ELI_LILLY_AND_COMPANY-US202102006611

PATIENT
  Sex: Female

DRUGS (1)
  1. REYVOW [Suspect]
     Active Substance: LASMIDITAN
     Indication: MIGRAINE
     Dosage: 100 MG, SINGLE
     Route: 065

REACTIONS (3)
  - Nausea [Recovered/Resolved]
  - Euphoric mood [Recovered/Resolved]
  - Vomiting [Recovered/Resolved]
